FAERS Safety Report 12037216 (Version 1)
Quarter: 2016Q1

REPORT INFORMATION
  Report Type: Report from Study
  Country: JP (occurrence: JP)
  Receive Date: 20160208
  Receipt Date: 20160208
  Transmission Date: 20160526
  Serious: Yes (Other)
  Sender: FDA-Public Use
  Company Number: JP-ROCHE-1706227

PATIENT

DRUGS (3)
  1. PEGINTERFERON ALFA-2B [Suspect]
     Active Substance: PEGINTERFERON ALFA-2B
     Indication: CHRONIC HEPATITIS C
     Dosage: EVERY OTHER WEEK.
     Route: 058
  2. RIBAVIRIN. [Suspect]
     Active Substance: RIBAVIRIN
     Indication: CHRONIC HEPATITIS C
     Dosage: ADMINISTRATED ONCE DAILY AT DOSES OF 1000MG (BODYWEIGHT, }80KG), 800MG (BODYWEIGHT, }60 TO {/=80 KG)
     Route: 048
  3. TELAPREVIR [Suspect]
     Active Substance: TELAPREVIR
     Indication: CHRONIC HEPATITIS C
     Route: 048

REACTIONS (18)
  - Neutrophil count decreased [Unknown]
  - Renal disorder [Unknown]
  - Nausea [Unknown]
  - Acute kidney injury [Unknown]
  - Hyperuricaemia [Unknown]
  - Rash [Unknown]
  - Stevens-Johnson syndrome [Unknown]
  - Erythema [Unknown]
  - Blood uric acid increased [Unknown]
  - Decreased appetite [Unknown]
  - Thrombocytopenia [Unknown]
  - Erythema multiforme [Unknown]
  - Anaemia [Unknown]
  - White blood cell count decreased [Unknown]
  - Renal impairment [Unknown]
  - Drug reaction with eosinophilia and systemic symptoms [Unknown]
  - Blood creatinine increased [Unknown]
  - Drug eruption [Unknown]
